FAERS Safety Report 19184177 (Version 1)
Quarter: 2021Q2

REPORT INFORMATION
  Report Type: Spontaneous
  Country: US (occurrence: US)
  Receive Date: 20210426
  Receipt Date: 20210426
  Transmission Date: 20210717
  Serious: No
  Sender: FDA-Public Use
  Company Number: None

PATIENT
  Age: 3 Year
  Sex: Male
  Weight: 15.3 kg

DRUGS (1)
  1. PROSAN GENTLE FOAMING SANITIZER [Suspect]
     Active Substance: BENZETHONIUM CHLORIDE

REACTIONS (2)
  - Corneal disorder [None]
  - Accidental exposure to product by child [None]

NARRATIVE: CASE EVENT DATE: 20210426
